FAERS Safety Report 23995106 (Version 1)
Quarter: 2024Q2

REPORT INFORMATION
  Report Type: Spontaneous
  Country: CN (occurrence: CN)
  Receive Date: 20240620
  Receipt Date: 20240620
  Transmission Date: 20240716
  Serious: Yes (Hospitalization, Other)
  Sender: FDA-Public Use
  Company Number: CN-Merck Healthcare KGaA-2024031978

PATIENT
  Age: 55 Year
  Sex: Male
  Weight: 72 kg

DRUGS (4)
  1. ERBITUX [Suspect]
     Active Substance: CETUXIMAB
     Indication: Rectal cancer
     Dosage: 1000 MG, OTHER (ONCE IN 21 DAYS)
     Route: 041
     Dates: start: 20230609, end: 20230823
  2. OXALIPLATIN [Concomitant]
     Active Substance: OXALIPLATIN
     Indication: Rectal cancer
     Dosage: 85 MG/M2, UNK
     Route: 041
     Dates: start: 20230527, end: 20230823
  3. LEUCOVORIN CALCIUM [Concomitant]
     Active Substance: LEUCOVORIN CALCIUM
     Indication: Rectal cancer
     Dosage: 400 MG/M2, UNK
     Route: 041
     Dates: start: 20230527, end: 20230823
  4. FLUOROURACIL [Concomitant]
     Active Substance: FLUOROURACIL
     Indication: Rectal cancer
     Dosage: 2400 MG/M2, UNK
     Route: 041
     Dates: start: 20230527, end: 20230823

REACTIONS (4)
  - Pustule [Recovering/Resolving]
  - Papule [Recovering/Resolving]
  - Haemorrhage [Recovering/Resolving]
  - Paronychia [Recovering/Resolving]

NARRATIVE: CASE EVENT DATE: 20230823
